FAERS Safety Report 11037211 (Version 2)
Quarter: 2015Q2

REPORT INFORMATION
  Report Type: Report from Study
  Country: US (occurrence: US)
  Receive Date: 20150416
  Receipt Date: 20150625
  Transmission Date: 20150821
  Serious: Yes (Death, Hospitalization)
  Sender: FDA-Public Use
  Company Number: US-ORION CORPORATION ORION PHARMA-ENT 2015-0536

PATIENT
  Sex: Male

DRUGS (1)
  1. COMTAN [Suspect]
     Active Substance: ENTACAPONE
     Route: 048

REACTIONS (3)
  - Cardiopulmonary failure [Fatal]
  - Cerebrovascular accident [Fatal]
  - Pneumonia aspiration [Fatal]
